FAERS Safety Report 7784296-4 (Version None)
Quarter: 2011Q3

REPORT INFORMATION
  Report Type: 
  Country: None (occurrence: None)
  Receive Date: 20110928
  Receipt Date: 20110920
  Transmission Date: 20111222
  Serious: Yes (Other)
  Sender: FDA-Public Use
  Company Number: US-ELI_LILLY_AND_COMPANY-US201109006821

PATIENT
  Sex: Male

DRUGS (3)
  1. EFFIENT [Suspect]
     Indication: STENT PLACEMENT
     Dosage: 10 MG, QD
     Dates: start: 20100101
  2. LIPITOR [Concomitant]
  3. ASPIRIN [Concomitant]

REACTIONS (3)
  - CONTUSION [None]
  - STENT PLACEMENT [None]
  - HAEMORRHAGE [None]
